FAERS Safety Report 8512074-7 (Version None)
Quarter: 2012Q2

REPORT INFORMATION
  Report Type: 
  Country: None (occurrence: None)
  Receive Date: 20120405
  Receipt Date: 20080722
  Transmission Date: 20120825
  Serious: Yes (Other)
  Sender: FDA-Public Use
  Company Number: PHEH2008US05890

PATIENT
  Age: 44 Year
  Sex: Female
  Weight: 78.5 kg

DRUGS (35)
  1. PRILOSEC [Concomitant]
  2. PLAVIX [Concomitant]
  3. AMOXICILLIN [Concomitant]
  4. ALBUTEROL SULFATE [Concomitant]
  5. NASONEX [Concomitant]
  6. LOVAZA [Concomitant]
  7. THEO (THEOPHYLLINE) [Concomitant]
  8. NITROSTAT [Concomitant]
  9. METOPROLOL TARTRATE [Concomitant]
  10. LASIX [Concomitant]
  11. ASPIRIN [Concomitant]
  12. LORCET-HD [Concomitant]
  13. LIDODERM [Concomitant]
  14. ALLEGRA [Concomitant]
  15. VITAMIN D [Concomitant]
  16. SINGULAIR [Concomitant]
  17. POTASSIUM CHLORIDE [Concomitant]
  18. LANTUS [Concomitant]
  19. PREMARIN [Concomitant]
  20. PHENERGAN ^AVENTIS PHARMA^ (PROMETHAZINE HYDROCHLORIDE) [Concomitant]
  21. OS-CAL D (CALCIUM CARBONATE, COLECALIFEROL) [Concomitant]
  22. LISINOPRIL [Concomitant]
  23. XANAX [Concomitant]
  24. SOMA [Concomitant]
  25. MILK OF MAGNESIA TAB [Concomitant]
  26. FLECTOR [Concomitant]
  27. CARBAMAZEPINE [Concomitant]
  28. RECLAST [Suspect]
     Indication: OSTEOPOROSIS
     Dosage: 5 MG/100ML, ONCE, IV INFUSION
     Dates: start: 20080605
  29. TRICOR [Concomitant]
  30. NOVOLOG [Concomitant]
  31. NOVOLIN N [Concomitant]
  32. GLUCOTROL XL [Concomitant]
  33. GLUCOPHAGE [Concomitant]
  34. CRESTOR [Concomitant]
  35. BETOPTIC S [Concomitant]

REACTIONS (7)
  - ABASIA [None]
  - MYALGIA [None]
  - BLOOD GLUCOSE INCREASED [None]
  - PAIN [None]
  - BONE PAIN [None]
  - ARTHRALGIA [None]
  - BLOOD CREATINE PHOSPHOKINASE INCREASED [None]
